FAERS Safety Report 13829375 (Version 1)
Quarter: 2017Q3

REPORT INFORMATION
  Report Type: Spontaneous
  Country: FR (occurrence: FR)
  Receive Date: 20170803
  Receipt Date: 20170803
  Transmission Date: 20171127
  Serious: Yes (Hospitalization, Other)
  Sender: FDA-Public Use
  Company Number: FR-PFIZER INC-2017333611

PATIENT
  Age: 32 Year
  Sex: Female

DRUGS (2)
  1. CYTOTEC [Suspect]
     Active Substance: MISOPROSTOL
     Indication: ABORTION INDUCED
     Dosage: UNK
     Dates: start: 20150504, end: 20150504
  2. MIFEGYNE [Suspect]
     Active Substance: MIFEPRISTONE
     Indication: ABORTION INDUCED
     Dosage: UNK
     Dates: start: 20150504, end: 20150504

REACTIONS (4)
  - Uterine contractions during pregnancy [Unknown]
  - Pain [Unknown]
  - Haemorrhage [Unknown]
  - Drug ineffective for unapproved indication [Not Recovered/Not Resolved]
